FAERS Safety Report 7138693-0 (Version None)
Quarter: 2010Q4

REPORT INFORMATION
  Report Type: 
  Country: None (occurrence: None)
  Receive Date: 20101201
  Receipt Date: 20101201
  Transmission Date: 20110411
  Serious: Yes (Hospitalization)
  Sender: FDA-Public Use
  Company Number: None

PATIENT
  Sex: Male

DRUGS (1)
  1. DARVOCET-N 100 [Suspect]
     Indication: PAIN
     Dosage: 2QHS  ^MANY YEARS^

REACTIONS (1)
  - HEART RATE INCREASED [None]
